FAERS Safety Report 12804012 (Version 1)
Quarter: 2016Q4

REPORT INFORMATION
  Report Type: Spontaneous
  Country: US (occurrence: US)
  Receive Date: 20161001
  Receipt Date: 20161001
  Transmission Date: 20170207
  Serious: Yes (Disabling, Other)
  Sender: FDA-Public Use
  Company Number: None

PATIENT
  Age: 2 Year
  Sex: Female
  Weight: 11.25 kg

DRUGS (2)
  1. CHILDRENS ZYRTEC [Suspect]
     Active Substance: CETIRIZINE HYDROCHLORIDE
     Indication: RHINORRHOEA
     Dosage: 2.5 TEASPOON(S) ORAL DAILY?
     Route: 048
     Dates: start: 20160208, end: 20160916
  2. CHILDRENS ZYRTEC [Suspect]
     Active Substance: CETIRIZINE HYDROCHLORIDE
     Indication: SEASONAL ALLERGY
     Dosage: 2.5 TEASPOON(S) ORAL DAILY?
     Route: 048
     Dates: start: 20160208, end: 20160916

REACTIONS (2)
  - Apraxia [None]
  - Aphasia [None]

NARRATIVE: CASE EVENT DATE: 20160901
